FAERS Safety Report 9701164 (Version 2)
Quarter: 2015Q3

REPORT INFORMATION
  Report Type: Spontaneous
  Country: US (occurrence: US)
  Receive Date: 20131121
  Receipt Date: 20150803
  Transmission Date: 20151125
  Serious: No
  Sender: FDA-Public Use
  Company Number: US-GILEAD-2008-0015862

PATIENT
  Age: 79 Year
  Sex: Female

DRUGS (9)
  1. LETAIRIS [Suspect]
     Active Substance: AMBRISENTAN
     Indication: PULMONARY ARTERIAL HYPERTENSION
     Route: 048
     Dates: start: 20080228, end: 20080301
  2. FUROSEMIDE. [Concomitant]
     Active Substance: FUROSEMIDE
  3. ZYRTEC [Concomitant]
     Active Substance: CETIRIZINE HYDROCHLORIDE
  4. RANITIDINE [Concomitant]
     Active Substance: RANITIDINE\RANITIDINE HYDROCHLORIDE
  5. BABY ASPIRIN [Concomitant]
     Active Substance: ASPIRIN
  6. POTASSIUM CHLORIDE. [Concomitant]
     Active Substance: POTASSIUM CHLORIDE
  7. COD LIVER OIL [Concomitant]
     Active Substance: COD LIVER OIL
  8. TYLENOL [Concomitant]
     Active Substance: ACETAMINOPHEN
  9. AMLODIPINE [Concomitant]
     Active Substance: AMLODIPINE BESYLATE

REACTIONS (2)
  - Abdominal discomfort [None]
  - Eye swelling [None]

NARRATIVE: CASE EVENT DATE: 20080301
